FAERS Safety Report 23624482 (Version 4)
Quarter: 2024Q2

REPORT INFORMATION
  Report Type: Report from Study
  Country: US (occurrence: US)
  Receive Date: 20240313
  Receipt Date: 20240610
  Transmission Date: 20240716
  Serious: No
  Sender: FDA-Public Use
  Company Number: US-JNJFOC-20240313498

PATIENT
  Age: 28 Year
  Sex: Male
  Weight: 106.69 kg

DRUGS (82)
  1. SPRAVATO [Suspect]
     Active Substance: ESKETAMINE
     Indication: Depression
     Dosage: ^56 MG, 1 TOTAL DOSE^
     Dates: start: 20231009, end: 20231009
  2. SPRAVATO [Suspect]
     Active Substance: ESKETAMINE
     Indication: Major depression
     Dosage: ^84 MG, 21 TOTAL DOSES^
     Dates: start: 20231013, end: 20240226
  3. SPRAVATO [Suspect]
     Active Substance: ESKETAMINE
     Dosage: ^84 MG, 1 TOTAL DOSE^, RECENT DOSE
     Dates: start: 20240304, end: 20240304
  4. CARBAMAZEPINE [Concomitant]
     Active Substance: CARBAMAZEPINE
     Indication: Post-traumatic stress disorder
  5. CARBAMAZEPINE [Concomitant]
     Active Substance: CARBAMAZEPINE
     Indication: Attention deficit hyperactivity disorder
  6. CARBAMAZEPINE [Concomitant]
     Active Substance: CARBAMAZEPINE
     Indication: Borderline personality disorder
  7. CARBAMAZEPINE [Concomitant]
     Active Substance: CARBAMAZEPINE
     Indication: Panic disorder
  8. CARBAMAZEPINE [Concomitant]
     Active Substance: CARBAMAZEPINE
     Indication: Obsessive-compulsive disorder
  9. CARBAMAZEPINE [Concomitant]
     Active Substance: CARBAMAZEPINE
     Indication: Intentional self-injury
  10. CARBAMAZEPINE [Concomitant]
     Active Substance: CARBAMAZEPINE
     Indication: Major depression
  11. DIVALPROEX SODIUM [Concomitant]
     Active Substance: DIVALPROEX SODIUM
     Indication: Post-traumatic stress disorder
  12. DIVALPROEX SODIUM [Concomitant]
     Active Substance: DIVALPROEX SODIUM
     Indication: Attention deficit hyperactivity disorder
  13. DIVALPROEX SODIUM [Concomitant]
     Active Substance: DIVALPROEX SODIUM
     Indication: Borderline personality disorder
  14. DIVALPROEX SODIUM [Concomitant]
     Active Substance: DIVALPROEX SODIUM
     Indication: Panic disorder
  15. DIVALPROEX SODIUM [Concomitant]
     Active Substance: DIVALPROEX SODIUM
     Indication: Obsessive-compulsive disorder
  16. DIVALPROEX SODIUM [Concomitant]
     Active Substance: DIVALPROEX SODIUM
     Indication: Intentional self-injury
  17. DIVALPROEX SODIUM [Concomitant]
     Active Substance: DIVALPROEX SODIUM
     Indication: Major depression
  18. FLUOXETINE [Concomitant]
     Active Substance: FLUOXETINE HYDROCHLORIDE
     Indication: Post-traumatic stress disorder
  19. FLUOXETINE [Concomitant]
     Active Substance: FLUOXETINE HYDROCHLORIDE
     Indication: Obsessive-compulsive disorder
  20. FLUOXETINE [Concomitant]
     Active Substance: FLUOXETINE HYDROCHLORIDE
     Indication: Attention deficit hyperactivity disorder
  21. FLUOXETINE [Concomitant]
     Active Substance: FLUOXETINE HYDROCHLORIDE
     Indication: Borderline personality disorder
  22. FLUOXETINE [Concomitant]
     Active Substance: FLUOXETINE HYDROCHLORIDE
     Indication: Panic disorder
  23. FLUOXETINE [Concomitant]
     Active Substance: FLUOXETINE HYDROCHLORIDE
     Indication: Intentional self-injury
  24. FLUOXETINE [Concomitant]
     Active Substance: FLUOXETINE HYDROCHLORIDE
     Indication: Major depression
  25. GABAPENTIN [Concomitant]
     Active Substance: GABAPENTIN
     Indication: Borderline personality disorder
  26. GABAPENTIN [Concomitant]
     Active Substance: GABAPENTIN
     Indication: Major depression
  27. GABAPENTIN [Concomitant]
     Active Substance: GABAPENTIN
     Indication: Obsessive-compulsive disorder
  28. GABAPENTIN [Concomitant]
     Active Substance: GABAPENTIN
     Indication: Panic disorder
  29. GABAPENTIN [Concomitant]
     Active Substance: GABAPENTIN
     Indication: Intentional self-injury
  30. GABAPENTIN [Concomitant]
     Active Substance: GABAPENTIN
     Indication: Attention deficit hyperactivity disorder
  31. GABAPENTIN [Concomitant]
     Active Substance: GABAPENTIN
     Indication: Post-traumatic stress disorder
  32. GUANFACINE [Concomitant]
     Active Substance: GUANFACINE
     Indication: Borderline personality disorder
  33. GUANFACINE [Concomitant]
     Active Substance: GUANFACINE
     Indication: Major depression
  34. GUANFACINE [Concomitant]
     Active Substance: GUANFACINE
     Indication: Obsessive-compulsive disorder
  35. GUANFACINE [Concomitant]
     Active Substance: GUANFACINE
     Indication: Panic disorder
  36. GUANFACINE [Concomitant]
     Active Substance: GUANFACINE
     Indication: Intentional self-injury
  37. GUANFACINE [Concomitant]
     Active Substance: GUANFACINE
     Indication: Attention deficit hyperactivity disorder
  38. GUANFACINE [Concomitant]
     Active Substance: GUANFACINE
     Indication: Post-traumatic stress disorder
  39. HYDROXYZINE [Concomitant]
     Active Substance: HYDROXYZINE HYDROCHLORIDE
     Indication: Borderline personality disorder
  40. HYDROXYZINE [Concomitant]
     Active Substance: HYDROXYZINE HYDROCHLORIDE
     Indication: Major depression
  41. HYDROXYZINE [Concomitant]
     Active Substance: HYDROXYZINE HYDROCHLORIDE
     Indication: Panic disorder
  42. HYDROXYZINE [Concomitant]
     Active Substance: HYDROXYZINE HYDROCHLORIDE
     Indication: Obsessive-compulsive disorder
  43. HYDROXYZINE [Concomitant]
     Active Substance: HYDROXYZINE HYDROCHLORIDE
     Indication: Intentional self-injury
  44. HYDROXYZINE [Concomitant]
     Active Substance: HYDROXYZINE HYDROCHLORIDE
     Indication: Attention deficit hyperactivity disorder
  45. HYDROXYZINE [Concomitant]
     Active Substance: HYDROXYZINE HYDROCHLORIDE
     Indication: Post-traumatic stress disorder
  46. OLANZAPINE [Concomitant]
     Active Substance: OLANZAPINE
     Indication: Borderline personality disorder
  47. OLANZAPINE [Concomitant]
     Active Substance: OLANZAPINE
     Indication: Major depression
  48. OLANZAPINE [Concomitant]
     Active Substance: OLANZAPINE
     Indication: Obsessive-compulsive disorder
  49. OLANZAPINE [Concomitant]
     Active Substance: OLANZAPINE
     Indication: Panic disorder
  50. OLANZAPINE [Concomitant]
     Active Substance: OLANZAPINE
     Indication: Intentional self-injury
  51. OLANZAPINE [Concomitant]
     Active Substance: OLANZAPINE
     Indication: Attention deficit hyperactivity disorder
  52. OLANZAPINE [Concomitant]
     Active Substance: OLANZAPINE
     Indication: Post-traumatic stress disorder
  53. PROPRANOLOL [Concomitant]
     Active Substance: PROPRANOLOL HYDROCHLORIDE
     Indication: Panic disorder
  54. PROPRANOLOL [Concomitant]
     Active Substance: PROPRANOLOL HYDROCHLORIDE
     Indication: Post-traumatic stress disorder
  55. PROPRANOLOL [Concomitant]
     Active Substance: PROPRANOLOL HYDROCHLORIDE
     Indication: Obsessive-compulsive disorder
  56. PROPRANOLOL [Concomitant]
     Active Substance: PROPRANOLOL HYDROCHLORIDE
     Indication: Intentional self-injury
  57. PROPRANOLOL [Concomitant]
     Active Substance: PROPRANOLOL HYDROCHLORIDE
     Indication: Major depression
  58. PROPRANOLOL [Concomitant]
     Active Substance: PROPRANOLOL HYDROCHLORIDE
     Indication: Attention deficit hyperactivity disorder
  59. TEGRETOL [Concomitant]
     Active Substance: CARBAMAZEPINE
     Indication: Panic disorder
  60. TEGRETOL [Concomitant]
     Active Substance: CARBAMAZEPINE
     Indication: Post-traumatic stress disorder
  61. TEGRETOL [Concomitant]
     Active Substance: CARBAMAZEPINE
     Indication: Obsessive-compulsive disorder
  62. TEGRETOL [Concomitant]
     Active Substance: CARBAMAZEPINE
     Indication: Intentional self-injury
  63. TEGRETOL [Concomitant]
     Active Substance: CARBAMAZEPINE
     Indication: Major depression
  64. TEGRETOL [Concomitant]
     Active Substance: CARBAMAZEPINE
     Indication: Attention deficit hyperactivity disorder
  65. TRAZODONE [Concomitant]
     Active Substance: TRAZODONE HYDROCHLORIDE
     Indication: Panic disorder
  66. TRAZODONE [Concomitant]
     Active Substance: TRAZODONE HYDROCHLORIDE
     Indication: Post-traumatic stress disorder
  67. TRAZODONE [Concomitant]
     Active Substance: TRAZODONE HYDROCHLORIDE
     Indication: Obsessive-compulsive disorder
  68. TRAZODONE [Concomitant]
     Active Substance: TRAZODONE HYDROCHLORIDE
     Indication: Intentional self-injury
  69. TRAZODONE [Concomitant]
     Active Substance: TRAZODONE HYDROCHLORIDE
     Indication: Major depression
  70. TRAZODONE [Concomitant]
     Active Substance: TRAZODONE HYDROCHLORIDE
     Indication: Attention deficit hyperactivity disorder
  71. VERAPAMIL [Concomitant]
     Active Substance: VERAPAMIL HYDROCHLORIDE
     Indication: Panic disorder
  72. VERAPAMIL [Concomitant]
     Active Substance: VERAPAMIL HYDROCHLORIDE
     Indication: Post-traumatic stress disorder
  73. VERAPAMIL [Concomitant]
     Active Substance: VERAPAMIL HYDROCHLORIDE
     Indication: Obsessive-compulsive disorder
  74. VERAPAMIL [Concomitant]
     Active Substance: VERAPAMIL HYDROCHLORIDE
     Indication: Intentional self-injury
  75. VERAPAMIL [Concomitant]
     Active Substance: VERAPAMIL HYDROCHLORIDE
     Indication: Major depression
  76. VERAPAMIL [Concomitant]
     Active Substance: VERAPAMIL HYDROCHLORIDE
     Indication: Attention deficit hyperactivity disorder
  77. SCOPOLAMINE [Concomitant]
     Active Substance: SCOPOLAMINE
  78. ZOFRAN [Concomitant]
     Active Substance: ONDANSETRON HYDROCHLORIDE
  79. PHENERGAN [Concomitant]
     Active Substance: PROMETHAZINE HYDROCHLORIDE
  80. PANTOPRAZOLE [Concomitant]
     Active Substance: PANTOPRAZOLE
  81. METOCLOPRAMIDE [Concomitant]
     Active Substance: METOCLOPRAMIDE
  82. FLUTICASONE [Concomitant]
     Active Substance: FLUTICASONE

REACTIONS (3)
  - Migraine [Recovered/Resolved]
  - Sedation [Recovered/Resolved]
  - Dissociation [Recovered/Resolved]

NARRATIVE: CASE EVENT DATE: 20240304
